FAERS Safety Report 5923114-3 (Version None)
Quarter: 2008Q4

REPORT INFORMATION
  Report Type: 
  Country: None (occurrence: None)
  Receive Date: 20081018
  Receipt Date: 20081009
  Transmission Date: 20090506
  Serious: Yes (Hospitalization, Other)
  Sender: FDA-Public Use
  Company Number: US-PFIZER INC-2008014164

PATIENT
  Sex: Female
  Weight: 104.1 kg

DRUGS (13)
  1. CELEBREX [Suspect]
     Indication: MULTIPLE SCLEROSIS
     Dates: end: 20070701
  2. REBIF [Suspect]
     Indication: MULTIPLE SCLEROSIS
     Dosage: DAILY DOSE:44MCG-FREQ:FREQUENCY: 3 IN 1 WEEKS
     Route: 058
     Dates: start: 20061122
  3. PREMPRO [Suspect]
     Indication: HORMONE REPLACEMENT THERAPY
     Dates: start: 19970101, end: 20070701
  4. SYNTHROID [Concomitant]
  5. PRAVACHOL [Concomitant]
     Indication: BLOOD CHOLESTEROL INCREASED
     Dates: start: 20000101
  6. IBUPROFEN [Concomitant]
     Indication: PAIN
  7. ALL OTHER THERAPEUTIC PRODUCTS [Concomitant]
  8. COZAAR [Concomitant]
     Indication: HYPERTENSION
     Dates: start: 19970101
  9. DILTIAZEM HCL [Concomitant]
     Indication: HYPERTENSION
     Dates: start: 19970101, end: 20070701
  10. WELLBUTRIN SR [Concomitant]
     Indication: MULTIPLE SCLEROSIS
     Dates: end: 20070701
  11. SEROQUEL [Concomitant]
     Indication: SLEEP DISORDER
  12. ZETIA [Concomitant]
     Indication: BLOOD CHOLESTEROL INCREASED
  13. TRICOR [Concomitant]

REACTIONS (8)
  - ANAEMIA [None]
  - CORONARY ARTERY OCCLUSION [None]
  - IN-STENT CORONARY ARTERY RESTENOSIS [None]
  - LYMPHOCYTE COUNT INCREASED [None]
  - MYOCARDIAL INFARCTION [None]
  - PAIN [None]
  - SINUSITIS [None]
  - WHITE BLOOD CELL COUNT DECREASED [None]
